FAERS Safety Report 24579294 (Version 2)
Quarter: 2024Q4

REPORT INFORMATION
  Report Type: Spontaneous
  Country: JP (occurrence: JP)
  Receive Date: 20241105
  Receipt Date: 20241120
  Transmission Date: 20250115
  Serious: Yes (Death)
  Sender: REGENERON
  Company Number: JP-BAYER-2024A156355

PATIENT
  Age: 86 Year
  Sex: Male

DRUGS (2)
  1. EYLEA HD [Suspect]
     Active Substance: AFLIBERCEPT
     Indication: Neovascular age-related macular degeneration
     Dosage: 8 MG, ONCE, LEFT EYE, SOLUTION FOR INJECTION, 114.3 MG/ML
     Route: 031
     Dates: start: 20240718, end: 20240718
  2. EYLEA HD [Suspect]
     Active Substance: AFLIBERCEPT
     Dosage: 8 MG, ONCE, LEFT EYE, SOLUTION FOR INJECTION, 114.3 MG/ML
     Route: 031
     Dates: start: 20240822, end: 20240822

REACTIONS (1)
  - Death [Fatal]
